FAERS Safety Report 8078555-8 (Version None)
Quarter: 2012Q1

REPORT INFORMATION
  Report Type: 
  Country: None (occurrence: None)
  Receive Date: 20120124
  Receipt Date: 20120119
  Transmission Date: 20120608
  Serious: Yes (Hospitalization)
  Sender: FDA-Public Use
  Company Number: IMP_05718_2012

PATIENT
  Age: 46 Year
  Sex: Male

DRUGS (5)
  1. AMPICILLIN AND SULBACTAM [Suspect]
     Indication: CELLULITIS
     Dosage: (3 G 1X/6 HOURS)
  2. MEROPENEM [Suspect]
     Indication: CELLULITIS
     Dosage: (1 G 1X/8 HOURS)
  3. OLANZAPINE [Concomitant]
  4. DIVALPROEX SODIUM [Suspect]
     Indication: SCHIZOAFFECTIVE DISORDER BIPOLAR TYPE
     Dosage: (1500 MG DAILY, 2000 MG AT BEDTIME), (1500 MG 1X/6 HOURS), (1500 MG DAILY, 2000 MG AT BEDTIME)
  5. IMIPENEM AND CILASTATIN SODIUM [Suspect]
     Indication: CELLULITIS
     Dosage: (500 MG 1X/6 HOURS)

REACTIONS (11)
  - DRUG LEVEL BELOW THERAPEUTIC [None]
  - ARTHRALGIA [None]
  - CONDITION AGGRAVATED [None]
  - DRUG INTERACTION [None]
  - WHITE BLOOD CELL COUNT INCREASED [None]
  - PYREXIA [None]
  - MYOSITIS [None]
  - SEDATION [None]
  - TACHYCARDIA [None]
  - SEPSIS [None]
  - CELLULITIS [None]
